FAERS Safety Report 17986243 (Version 7)
Quarter: 2020Q4

REPORT INFORMATION
  Report Type: Report from Study
  Country: US (occurrence: US)
  Receive Date: 20200706
  Receipt Date: 20201217
  Transmission Date: 20210113
  Serious: Yes (Hospitalization)
  Sender: FDA-Public Use
  Company Number: NVSC2020US183351

PATIENT
  Age: 20 Year
  Sex: Male
  Weight: 78 kg

DRUGS (4)
  1. ADAKVEO [Suspect]
     Active Substance: CRIZANLIZUMAB-TMCA
     Indication: SICKLE CELL DISEASE
     Dosage: 5 MG/KG (40 ML)
     Route: 042
     Dates: start: 20200326, end: 20200326
  2. ADAKVEO [Suspect]
     Active Substance: CRIZANLIZUMAB-TMCA
     Dosage: 5 MG/KG (40 ML)
     Route: 042
     Dates: start: 20200507, end: 20200507
  3. HYDREA [Concomitant]
     Active Substance: HYDROXYUREA
     Indication: PRODUCT USED FOR UNKNOWN INDICATION
     Dosage: 500 MG, TID
     Route: 048
  4. ADAKVEO [Suspect]
     Active Substance: CRIZANLIZUMAB-TMCA
     Indication: THALASSAEMIA BETA
     Dosage: 5 MG/KG (40 ML)
     Route: 042
     Dates: start: 20200409, end: 20200409

REACTIONS (17)
  - Abnormal behaviour [Recovered/Resolved]
  - Neck pain [Recovered/Resolved]
  - Pancytopenia [Recovered/Resolved]
  - Pyrexia [Recovered/Resolved]
  - Rhabdomyolysis [Recovered/Resolved]
  - Tension [Recovered/Resolved]
  - Illness [Unknown]
  - Sickle cell anaemia with crisis [Recovered/Resolved]
  - Hyperhidrosis [Recovered/Resolved]
  - Musculoskeletal chest pain [Recovered/Resolved]
  - Screaming [Recovered/Resolved]
  - Drug intolerance [Recovered/Resolved]
  - Dehydration [Recovered/Resolved]
  - Blood creatine phosphokinase increased [Recovered/Resolved]
  - Arthralgia [Recovered/Resolved]
  - Back pain [Recovered/Resolved]
  - Myalgia [Recovered/Resolved]

NARRATIVE: CASE EVENT DATE: 20200507
